FAERS Safety Report 21867009 (Version 1)
Quarter: 2023Q1

REPORT INFORMATION
  Report Type: Spontaneous
  Country: US (occurrence: US)
  Receive Date: 20230116
  Receipt Date: 20230116
  Transmission Date: 20230417
  Serious: Yes (Other)
  Sender: FDA-Public Use
  Company Number: US-TEVA-2023-US-2845626

PATIENT
  Sex: Male

DRUGS (1)
  1. METHYLPHENIDATE [Suspect]
     Active Substance: METHYLPHENIDATE
     Indication: Attention deficit hyperactivity disorder
     Dosage: 54 MG
     Dates: start: 2019

REACTIONS (8)
  - Compulsions [Unknown]
  - Intentional self-injury [Unknown]
  - Disturbance in attention [Unknown]
  - Feeling hot [Unknown]
  - Insomnia [Unknown]
  - Psychiatric symptom [Unknown]
  - Paranoia [Unknown]
  - Scar [Unknown]

NARRATIVE: CASE EVENT DATE: 20190101
